FAERS Safety Report 5475935-1 (Version None)
Quarter: 2007Q4

REPORT INFORMATION
  Report Type: 
  Country: None (occurrence: None)
  Receive Date: 20071003
  Receipt Date: 20070920
  Transmission Date: 20080405
  Serious: Yes (Death, Life-Threatening, Hospitalization)
  Sender: FDA-Public Use
  Company Number: JP-ELI_LILLY_AND_COMPANY-JP200708006609

PATIENT
  Age: 78 Year
  Sex: Female
  Weight: 52 kg

DRUGS (5)
  1. GEMZAR [Suspect]
     Indication: BILE DUCT CANCER
     Dosage: 800 MG, OTHER
     Route: 042
     Dates: start: 20050801, end: 20051203
  2. JUZENTAIHOTO [Concomitant]
     Dosage: 5 G, DAILY (1/D)
     Route: 048
     Dates: start: 20050801, end: 20051205
  3. URSO 250 [Concomitant]
     Dosage: 150 MG, DAILY (1/D)
     Route: 048
     Dates: start: 20050801, end: 20051205
  4. GASMOTIN [Concomitant]
     Dosage: 30 MG, DAILY (1/D)
     Route: 048
     Dates: start: 20050801, end: 20051205
  5. MUCOSTA [Concomitant]
     Dosage: 200 MG, DAILY (1/D)
     Route: 048
     Dates: start: 20050801, end: 20051205

REACTIONS (3)
  - CARDIAC FAILURE ACUTE [None]
  - INTERSTITIAL LUNG DISEASE [None]
  - SEPSIS [None]
